FAERS Safety Report 16126395 (Version 4)
Quarter: 2019Q3

REPORT INFORMATION
  Report Type: Spontaneous
  Country: DE (occurrence: DE)
  Receive Date: 20190328
  Receipt Date: 20190729
  Transmission Date: 20191004
  Serious: Yes (Other)
  Sender: FDA-Public Use
  Company Number: DE-BRISTOL-MYERS SQUIBB COMPANY-BMS-2019-027571

PATIENT

DRUGS (2)
  1. REYATAZ [Suspect]
     Active Substance: ATAZANAVIR SULFATE
     Indication: HIV INFECTION
     Dosage: UNK
     Route: 065
  2. KIVEXA [Suspect]
     Active Substance: ABACAVIR SULFATE\LAMIVUDINE
     Indication: HIV INFECTION
     Dosage: UNK
     Route: 065

REACTIONS (11)
  - Fatigue [Unknown]
  - Hepatic pain [Unknown]
  - Genital haemorrhage [Unknown]
  - Disease recurrence [Unknown]
  - Cardiovascular symptom [Unknown]
  - Pyrexia [Unknown]
  - Nausea [Unknown]
  - Bladder pain [Unknown]
  - Product complaint [Unknown]
  - Suspected counterfeit product [Unknown]
  - Adverse drug reaction [Unknown]
